FAERS Safety Report 17682553 (Version 2)
Quarter: 2020Q2

REPORT INFORMATION
  Report Type: Report from Study
  Country: CA (occurrence: CA)
  Receive Date: 20200418
  Receipt Date: 20200428
  Transmission Date: 20200714
  Serious: Yes (Other)
  Sender: FDA-Public Use
  Company Number: PHHY2018CA008023

PATIENT
  Age: 66 Year
  Sex: Female

DRUGS (1)
  1. ERELZI [Suspect]
     Active Substance: ETANERCEPT-SZZS
     Indication: RHEUMATOID ARTHRITIS
     Dosage: 25 MG, QW
     Route: 058
     Dates: start: 20180518

REACTIONS (9)
  - Injection site pain [Unknown]
  - C-reactive protein increased [Unknown]
  - Pain in extremity [Unknown]
  - General physical health deterioration [Unknown]
  - Skin reaction [Unknown]
  - Dysstasia [Unknown]
  - Pain [Unknown]
  - Arthropathy [Unknown]
  - Psoriasis [Unknown]

NARRATIVE: CASE EVENT DATE: 20180518
